FAERS Safety Report 5989370-0 (Version None)
Quarter: 2008Q4

REPORT INFORMATION
  Report Type: 
  Country: None (occurrence: None)
  Receive Date: 20081210
  Receipt Date: 20081201
  Transmission Date: 20090506
  Serious: Yes (Hospitalization)
  Sender: FDA-Public Use
  Company Number: US-JNJCH-2008056165

PATIENT
  Age: 65 Year
  Sex: Female
  Weight: 52.2 kg

DRUGS (1)
  1. SUDAFED PE SINUS HEADACHE CAPLET [Suspect]
     Indication: DRUG USE FOR UNKNOWN INDICATION
     Dosage: TEXT:1 CAPLET 1 TIME A DAY
     Route: 048

REACTIONS (2)
  - DYSARTHRIA [None]
  - VISION BLURRED [None]
